FAERS Safety Report 8225757-3 (Version None)
Quarter: 2012Q1

REPORT INFORMATION
  Report Type: 
  Country: None (occurrence: None)
  Receive Date: 20120321
  Receipt Date: 20110725
  Transmission Date: 20120608
  Serious: No
  Sender: FDA-Public Use
  Company Number: US-BAUSCH-2011BL004948

PATIENT
  Age: 49 Year
  Sex: Male
  Weight: 104 kg

DRUGS (5)
  1. ANDRODERM ^ASTRAZENECA^ [Concomitant]
  2. DESMOPRESSIN ACETATE [Suspect]
     Indication: HYPOPITUITARISM
     Route: 045
     Dates: start: 20110101, end: 20110708
  3. CORTEF [Concomitant]
  4. LEVOTHROID [Concomitant]
  5. DESMOPRESSIN ACETATE [Suspect]
     Route: 045
     Dates: start: 20110710

REACTIONS (4)
  - BLOOD SODIUM DECREASED [None]
  - OVERDOSE [None]
  - URINARY RETENTION [None]
  - HEADACHE [None]
